FAERS Safety Report 15314044 (Version 1)
Quarter: 2018Q3

REPORT INFORMATION
  Report Type: Spontaneous
  Country: US (occurrence: US)
  Receive Date: 20180824
  Receipt Date: 20180824
  Transmission Date: 20181010
  Serious: No
  Sender: FDA-Public Use
  Company Number: US-CIPLA LTD.-2018US19699

PATIENT

DRUGS (4)
  1. BUPROPION HYDROCHLORIDE XL [Suspect]
     Active Substance: BUPROPION HYDROCHLORIDE
     Indication: DEPRESSION
     Dosage: 150 MG, UNK
     Route: 048
     Dates: start: 2017
  2. OLANZAPINE. [Concomitant]
     Active Substance: OLANZAPINE
     Indication: AFFECTIVE DISORDER
     Dosage: 5 MG, UNK
     Route: 065
  3. LAMOTRIGINE. [Concomitant]
     Active Substance: LAMOTRIGINE
     Indication: AFFECTIVE DISORDER
     Dosage: 150 MG, UNK
     Route: 065
  4. PREMARIN [Concomitant]
     Active Substance: ESTROGENS, CONJUGATED
     Indication: PRODUCT USED FOR UNKNOWN INDICATION
     Dosage: UNK
     Route: 065

REACTIONS (2)
  - Hypersensitivity [Unknown]
  - Mouth swelling [Not Recovered/Not Resolved]

NARRATIVE: CASE EVENT DATE: 201805
